FAERS Safety Report 4401453-5 (Version None)
Quarter: 2004Q3

REPORT INFORMATION
  Report Type: 
  Country: None (occurrence: None)
  Receive Date: 20040907
  Receipt Date: 20040511
  Transmission Date: 20050211
  Serious: No
  Sender: FDA-Public Use
  Company Number: US-BRISTOL-MYERS SQUIBB COMPANY-12584108

PATIENT
  Age: 62 Year
  Sex: Male

DRUGS (2)
  1. COUMADIN [Suspect]
     Indication: CARDIAC VALVE DISEASE
  2. ASACOL [Interacting]
     Dosage: STARTED 2400 MG DAILY, PRIOR TO 2002. DOSE DECREASED TO 1600 MG DAILY ^RECENTLY^.
     Route: 048

REACTIONS (2)
  - DRUG INTERACTION [None]
  - INTERNATIONAL NORMALISED RATIO DECREASED [None]
